FAERS Safety Report 5521159-9 (Version None)
Quarter: 2007Q4

REPORT INFORMATION
  Report Type: 
  Country: None (occurrence: None)
  Receive Date: 20071119
  Receipt Date: 20071112
  Transmission Date: 20080405
  Serious: Yes (Hospitalization)
  Sender: FDA-Public Use
  Company Number: JP-ASTRAZENECA-2007AP07175

PATIENT

DRUGS (1)
  1. PULMICORT RESPULES [Suspect]
     Dosage: DOSE UNKNOWN
     Route: 055

REACTIONS (1)
  - RESPIRATORY SYNCYTIAL VIRUS INFECTION [None]
